FAERS Safety Report 19154265 (Version 4)
Quarter: 2021Q3

REPORT INFORMATION
  Report Type: Report from Study
  Country: US (occurrence: US)
  Receive Date: 20210419
  Receipt Date: 20210710
  Transmission Date: 20211014
  Serious: No
  Sender: FDA-Public Use
  Company Number: NVSC2021US086122

PATIENT
  Age: 53 Year
  Sex: Female

DRUGS (1)
  1. KESIMPTA [Suspect]
     Active Substance: OFATUMUMAB
     Indication: SECONDARY PROGRESSIVE MULTIPLE SCLEROSIS
     Dosage: UNK
     Route: 065
     Dates: start: 20210413

REACTIONS (4)
  - Somnolence [Unknown]
  - Injection site bruising [Unknown]
  - Migraine [Unknown]
  - Injection site pain [Unknown]

NARRATIVE: CASE EVENT DATE: 20210413
